FAERS Safety Report 15515123 (Version 4)
Quarter: 2022Q2

REPORT INFORMATION
  Report Type: Report from Study
  Country: CA (occurrence: CA)
  Receive Date: 20181017
  Receipt Date: 20220504
  Transmission Date: 20220721
  Serious: Yes (Other)
  Sender: FDA-Public Use
  Company Number: CA-BIOGEN-2018BI00645225

PATIENT
  Age: 56 Year
  Sex: Female

DRUGS (1)
  1. TECFIDERA [Suspect]
     Active Substance: DIMETHYL FUMARATE
     Indication: Multiple sclerosis
     Dosage: MAINTENANCE DOSE.
     Route: 050
     Dates: start: 20151015

REACTIONS (6)
  - Atrial fibrillation [Not Recovered/Not Resolved]
  - Tinnitus [Unknown]
  - Pain [Unknown]
  - Rash [Recovered/Resolved]
  - Flushing [Recovered/Resolved]
  - Rash pruritic [Unknown]

NARRATIVE: CASE EVENT DATE: 20181005
